FAERS Safety Report 4967518-4 (Version None)
Quarter: 2006Q2

REPORT INFORMATION
  Report Type: 
  Country: None (occurrence: None)
  Receive Date: 20060410
  Receipt Date: 20060228
  Transmission Date: 20061013
  Serious: Yes (Other)
  Sender: FDA-Public Use
  Company Number: US-GLAXOSMITHKLINE-A0595963A

PATIENT
  Age: 22 Year
  Sex: Male

DRUGS (1)
  1. AVODART [Suspect]
     Indication: DRUG USE FOR UNKNOWN INDICATION
     Route: 048

REACTIONS (11)
  - ACNE [None]
  - CHEILITIS [None]
  - DERMATITIS [None]
  - DRY SKIN [None]
  - FACIAL DYSMORPHISM [None]
  - IMPAIRED HEALING [None]
  - SCAR [None]
  - SKIN ATROPHY [None]
  - SKIN DISORDER [None]
  - SKIN REACTION [None]
  - SKIN WRINKLING [None]
